FAERS Safety Report 9588704 (Version 1)
Quarter: 2013Q4

REPORT INFORMATION
  Report Type: Spontaneous
  Country: US (occurrence: US)
  Receive Date: 20131003
  Receipt Date: 20131003
  Transmission Date: 20140711
  Serious: No
  Sender: FDA-Public Use
  Company Number: US-AMGEN-USASP2012065617

PATIENT
  Age: 60 Year
  Sex: Female

DRUGS (15)
  1. ENBREL [Suspect]
     Indication: RHEUMATOID ARTHRITIS
     Dosage: 25 MG, 2 TIMES/WK
     Route: 058
  2. SINGULAIR [Concomitant]
     Dosage: 5 MG, UNK
  3. CLONAZEPAM [Concomitant]
     Dosage: 0.5 MG, UNK
  4. TRIAMCINOLON                       /00031901/ [Concomitant]
     Dosage: SPRAY 55 MUG, UNK
  5. METOPROLOL [Concomitant]
     Dosage: 25 MG, UNK ER
  6. PRILOSEC                           /00661201/ [Concomitant]
     Dosage: 10 MG, UNK
  7. MULTIVITAMINS, PLAIN [Concomitant]
     Dosage: UNK
  8. MINERALS NOS [Concomitant]
     Dosage: UNK
  9. VITAMIN B 12 [Concomitant]
     Dosage: 50 MUG, UNK
  10. FISH OIL [Concomitant]
     Dosage: UNK
  11. TYLENOL                            /00020001/ [Concomitant]
     Dosage: 325 MG, UNK
  12. CENESTIN [Concomitant]
     Dosage: 0.3 MG, UNK
  13. GLUCOSAMINE CHONDROITIN            /01430901/ [Concomitant]
     Dosage: UNK
  14. ALTOPREV [Concomitant]
     Dosage: 20 MG, UNK ER
  15. VITAMIN D                          /00107901/ [Concomitant]
     Dosage: 400 UNK, UNK

REACTIONS (1)
  - Laryngitis [Unknown]
